FAERS Safety Report 9464657 (Version 2)
Quarter: 2014Q3

REPORT INFORMATION
  Report Type: Report from Study
  Country: DE (occurrence: DE)
  Receive Date: 20130819
  Receipt Date: 20140801
  Transmission Date: 20150326
  Serious: Yes (Hospitalization)
  Sender: FDA-Public Use
  Company Number: DE-ROCHE-1259335

PATIENT
  Age: 46 Year
  Sex: Male
  Weight: 77.8 kg

DRUGS (8)
  1. VISMODEGIB [Suspect]
     Active Substance: VISMODEGIB
     Indication: BASAL CELL CARCINOMA
     Dosage: LAST DOSE PRIOR TO SAE WAS 04/AUG/2013
     Route: 048
     Dates: start: 20130527, end: 20130805
  2. OMEGA PLUS [Concomitant]
  3. IBUPROFEN. [Concomitant]
     Active Substance: IBUPROFEN
     Route: 065
     Dates: start: 20140505, end: 20140512
  4. FRAXIPARIN [Concomitant]
     Active Substance: NADROPARIN CALCIUM
     Route: 065
     Dates: start: 20140506, end: 20140615
  5. TRAUMEEL [Concomitant]
     Route: 065
     Dates: start: 20140517, end: 20140715
  6. VISMODEGIB [Suspect]
     Active Substance: VISMODEGIB
     Route: 048
     Dates: start: 20130816
  7. SELEN [Concomitant]
     Active Substance: SELENIUM
     Route: 065
     Dates: start: 20140205, end: 20140314
  8. OMEGA 3 [Concomitant]
     Active Substance: OMEGA-3 FATTY ACIDS
     Route: 065
     Dates: start: 20140415

REACTIONS (1)
  - Pneumonia [Recovered/Resolved]

NARRATIVE: CASE EVENT DATE: 20130804
